FAERS Safety Report 4442847-1 (Version None)
Quarter: 2004Q3

REPORT INFORMATION
  Report Type: 
  Country: None (occurrence: None)
  Receive Date: 20040903
  Receipt Date: 20040524
  Transmission Date: 20050211
  Serious: Yes (Other)
  Sender: FDA-Public Use
  Company Number: 2004UW10849

PATIENT
  Age: 60 Year
  Sex: Male
  Weight: 88.4514 kg

DRUGS (2)
  1. CRESTOR [Suspect]
     Indication: BLOOD CHOLESTEROL INCREASED
     Dosage: 10 MG PO
     Route: 048
  2. OMEGA FISH OILS [Suspect]
     Dosage: 1200 MG

REACTIONS (3)
  - DRUG INTERACTION [None]
  - INFLUENZA LIKE ILLNESS [None]
  - MYALGIA [None]
